FAERS Safety Report 9337333 (Version 2)
Quarter: 2013Q3

REPORT INFORMATION
  Report Type: Report from Study
  Country: US (occurrence: US)
  Receive Date: 20130607
  Receipt Date: 20130903
  Transmission Date: 20140515
  Serious: Yes (Other)
  Sender: FDA-Public Use
  Company Number: US-VIIV HEALTHCARE LIMITED-A1025568A

PATIENT
  Age: 34 Year
  Sex: Female

DRUGS (6)
  1. SELZENTRY [Suspect]
     Indication: ANTIRETROVIRAL THERAPY
     Dosage: 150MG PER DAY
     Route: 048
     Dates: start: 20120816
  2. TENOFOVIR DISOPROXIL FUMARATE [Suspect]
     Indication: ANTIRETROVIRAL THERAPY
     Dosage: 300MG PER DAY
     Route: 048
     Dates: start: 20120816
  3. PREZISTA [Suspect]
     Indication: ANTIRETROVIRAL THERAPY
     Dosage: 800MG PER DAY
     Route: 048
     Dates: start: 20120816
  4. NORVIR [Suspect]
     Indication: ANTIRETROVIRAL THERAPY
     Dosage: 100MG PER DAY
     Route: 048
     Dates: start: 20120816
  5. EMTRIVA [Suspect]
     Indication: ANTIRETROVIRAL THERAPY
     Dosage: 200MG PER DAY
     Route: 048
     Dates: start: 20120816
  6. TRUVADA [Suspect]
     Indication: ANTIRETROVIRAL THERAPY
     Dosage: 1U PER DAY
     Route: 048
     Dates: start: 20120816

REACTIONS (2)
  - Abortion spontaneous [Unknown]
  - Exposure during pregnancy [Unknown]
